FAERS Safety Report 14613579 (Version 3)
Quarter: 2018Q2

REPORT INFORMATION
  Report Type: Spontaneous
  Country: US (occurrence: US)
  Receive Date: 20180308
  Receipt Date: 20180523
  Transmission Date: 20180711
  Serious: Yes (Death, Hospitalization)
  Sender: FDA-Public Use
  Company Number: US-NOVOPROD-588793

PATIENT
  Age: 25 Year
  Sex: Male
  Weight: 72.1 kg

DRUGS (1)
  1. NOVOSEVEN RT [Suspect]
     Active Substance: COAGULATION FACTOR VIIA RECOMBINANT HUMAN
     Indication: HAEMOPHILIA B WITH ANTI FACTOR IX
     Dosage: 8 MG, 2-3 HOURS (90 MCG/PER KILO)
     Route: 041
     Dates: start: 20180103

REACTIONS (10)
  - Haemothorax [Fatal]
  - Haematoma [Recovering/Resolving]
  - Acute kidney injury [Recovering/Resolving]
  - Acute respiratory failure [Fatal]
  - Septic shock [Unknown]
  - Cardiac arrest [Fatal]
  - Haemorrhagic ascites [Unknown]
  - Systemic candida [Unknown]
  - Tooth abscess [Not Recovered/Not Resolved]
  - Haemarthrosis [Recovering/Resolving]

NARRATIVE: CASE EVENT DATE: 2018
